FAERS Safety Report 15643159 (Version 2)
Quarter: 2019Q1

REPORT INFORMATION
  Report Type: Spontaneous
  Country: US (occurrence: US)
  Receive Date: 20181121
  Receipt Date: 20190306
  Transmission Date: 20190417
  Serious: Yes (Hospitalization, Other)
  Sender: FDA-Public Use
  Company Number: US-BAYER-2018-212859

PATIENT
  Age: 69 Year
  Sex: Female
  Weight: 139 kg

DRUGS (35)
  1. RETINOL [Concomitant]
     Active Substance: RETINOL
  2. PANTOPRAZOLE SODIUM SESQUIHYDRATE [Concomitant]
     Active Substance: PANTOPRAZOLE SODIUM
     Dosage: UNK
  3. CALCIUM CARBONATE. [Concomitant]
     Active Substance: CALCIUM CARBONATE
  4. MORPHINE [Concomitant]
     Active Substance: MORPHINE
  5. LASIX [Concomitant]
     Active Substance: FUROSEMIDE
  6. POTASSIUM CHLORIDE. [Concomitant]
     Active Substance: POTASSIUM CHLORIDE
  7. CALCIUM GLUCONATE. [Concomitant]
     Active Substance: CALCIUM GLUCONATE
  8. SALMETEROL XINAFOATE [Concomitant]
     Active Substance: SALMETEROL XINAFOATE
     Dosage: UNK
  9. NEXAVAR [Suspect]
     Active Substance: SORAFENIB
     Indication: PRODUCT USED FOR UNKNOWN INDICATION
  10. LEVOTHYROXINE. [Concomitant]
     Active Substance: LEVOTHYROXINE
     Dosage: UNK
     Dates: start: 20180125
  11. SPIRIVA [Concomitant]
     Active Substance: TIOTROPIUM BROMIDE MONOHYDRATE
  12. ADVAIR HFA [Concomitant]
     Active Substance: FLUTICASONE PROPIONATE\SALMETEROL XINAFOATE
  13. AMICAR [Concomitant]
     Active Substance: AMINOCAPROIC ACID
  14. METOPROLOL TARTRATE. [Concomitant]
     Active Substance: METOPROLOL TARTRATE
     Dosage: UNK
  15. FLUTICASONE PROPIONATE. [Concomitant]
     Active Substance: FLUTICASONE PROPIONATE
     Dosage: UNK
  16. FUROSEMIDE. [Concomitant]
     Active Substance: FUROSEMIDE
     Dosage: UNK
  17. TRAMADOL. [Concomitant]
     Active Substance: TRAMADOL
  18. MACROGOL [Concomitant]
     Active Substance: POLYETHYLENE GLYCOLS
     Dosage: UNK
  19. PREGABALIN. [Concomitant]
     Active Substance: PREGABALIN
     Dosage: UNK
  20. PREDNISOLONE. [Concomitant]
     Active Substance: PREDNISOLONE
  21. ALLOPURINOL. [Concomitant]
     Active Substance: ALLOPURINOL
  22. VITAMIN D [Concomitant]
     Active Substance: CHOLECALCIFEROL
  23. LEVOFLOXACIN. [Concomitant]
     Active Substance: LEVOFLOXACIN
     Dosage: UNK
  24. CODEINE [Concomitant]
     Active Substance: CODEINE
  25. SALICYLIC ACID. [Concomitant]
     Active Substance: SALICYLIC ACID
  26. SODIUM CHLORIDE. [Concomitant]
     Active Substance: SODIUM CHLORIDE
     Dosage: UNK
     Dates: start: 20180124
  27. ISOSORBIDE MONONITRATE. [Concomitant]
     Active Substance: ISOSORBIDE MONONITRATE
  28. DIPHENHYDRAMINE HYDROCHLORIDE. [Concomitant]
     Active Substance: DIPHENHYDRAMINE HYDROCHLORIDE
  29. ACYCLOVIR ALPHARMA [ACICLOVIR SODIUM] [Concomitant]
     Active Substance: ACYCLOVIR
  30. CHLORHEXIDINE [Concomitant]
     Active Substance: CHLORHEXIDINE
  31. MIRALAX [Concomitant]
     Active Substance: POLYETHYLENE GLYCOL 3350
  32. LYRICA [Concomitant]
     Active Substance: PREGABALIN
  33. LOPRESSOR [Concomitant]
     Active Substance: METOPROLOL TARTRATE
  34. POSACONAZOLE [Concomitant]
     Active Substance: POSACONAZOLE
  35. MAGNESIUM SULFATE. [Concomitant]
     Active Substance: MAGNESIUM SULFATE

REACTIONS (3)
  - Blood creatinine abnormal [Recovered/Resolved]
  - Hypocalcaemia [Recovered/Resolved with Sequelae]
  - Renal tubular necrosis [Recovering/Resolving]

NARRATIVE: CASE EVENT DATE: 20180316
